FAERS Safety Report 4372211-5 (Version None)
Quarter: 2004Q2

REPORT INFORMATION
  Report Type: 
  Country: None (occurrence: None)
  Receive Date: 20040602
  Receipt Date: 20040519
  Transmission Date: 20050107
  Serious: No
  Sender: FDA-Public Use
  Company Number: 2004AP02772

PATIENT
  Age: 42 Year
  Sex: Male
  Weight: 63.5 kg

DRUGS (7)
  1. SEROQUEL [Suspect]
     Indication: SCHIZOPHRENIA
  2. LODOPIN [Suspect]
     Indication: SCHIZOPHRENIA
  3. BARNETIL [Suspect]
     Indication: SCHIZOPHRENIA
  4. CONTOMIN [Suspect]
     Indication: SCHIZOPHRENIA
  5. IMPROMEN [Suspect]
     Indication: SCHIZOPHRENIA
  6. AKINETON [Suspect]
     Indication: SCHIZOPHRENIA
  7. HALOMONTH [Suspect]
     Indication: SCHIZOPHRENIA

REACTIONS (6)
  - BLOOD GLUCOSE INCREASED [None]
  - GLYCOSURIA [None]
  - GLYCOSYLATED HAEMOGLOBIN INCREASED [None]
  - URINE KETONE BODY PRESENT [None]
  - WHITE BLOOD CELL COUNT INCREASED [None]
  - XANTHOMA [None]
